FAERS Safety Report 5415193-7 (Version None)
Quarter: 2007Q3

REPORT INFORMATION
  Report Type: 
  Country: None (occurrence: None)
  Receive Date: 20070815
  Receipt Date: 20070718
  Transmission Date: 20080115
  Serious: No
  Sender: FDA-Public Use
  Company Number: A0664861A

PATIENT
  Age: 78 Year
  Sex: Female

DRUGS (9)
  1. COREG CR [Suspect]
     Indication: DRUG USE FOR UNKNOWN INDICATION
     Dosage: 20MG PER DAY
     Route: 048
     Dates: start: 20070601
  2. LASIX [Concomitant]
  3. RESTORIL [Concomitant]
  4. SPIRONOLACTONE [Concomitant]
  5. ISOSORBIDE DINITRATE [Concomitant]
  6. DIGOXIN [Concomitant]
  7. DIOVAN [Concomitant]
  8. PREDNISONE TAB [Concomitant]
  9. METHOTREXATE [Concomitant]

REACTIONS (1)
  - PAIN [None]
